FAERS Safety Report 21667046 (Version 1)
Quarter: 2022Q4

REPORT INFORMATION
  Report Type: Report from Study
  Country: ES (occurrence: ES)
  Receive Date: 20221201
  Receipt Date: 20221201
  Transmission Date: 20230113
  Serious: Yes (Hospitalization)
  Sender: FDA-Public Use
  Company Number: None

PATIENT
  Age: 8 Year
  Sex: Female

DRUGS (2)
  1. TEMOZOLOMIDE [Interacting]
     Active Substance: TEMOZOLOMIDE
     Indication: Glioma
     Dates: start: 2021, end: 202107
  2. LOMUSTINE [Interacting]
     Active Substance: LOMUSTINE
     Indication: Glioma
     Dates: start: 2021, end: 202107

REACTIONS (3)
  - Bone marrow failure [Recovering/Resolving]
  - Epistaxis [Recovered/Resolved]
  - Drug interaction [Unknown]

NARRATIVE: CASE EVENT DATE: 20210701
